FAERS Safety Report 24296649 (Version 2)
Quarter: 2024Q3

REPORT INFORMATION
  Report Type: Report from Study
  Country: US (occurrence: US)
  Receive Date: 20240909
  Receipt Date: 20240917
  Transmission Date: 20241016
  Serious: Yes (Hospitalization)
  Sender: SANOFI AVENTIS
  Company Number: US-SA-2024SA253625

PATIENT
  Age: 52 Year
  Sex: Male
  Weight: 77.1 kg

DRUGS (29)
  1. ISATUXIMAB-IRFC [Suspect]
     Active Substance: ISATUXIMAB-IRFC
     Indication: Plasma cell myeloma refractory
     Dosage: 795 MG, QW
     Dates: start: 20220324, end: 20220406
  2. ISATUXIMAB-IRFC [Suspect]
     Active Substance: ISATUXIMAB-IRFC
     Dosage: 795 MG, BIW
     Dates: start: 20220505, end: 20220601
  3. ISATUXIMAB-IRFC [Suspect]
     Active Substance: ISATUXIMAB-IRFC
     Dosage: 795 MG, BIW
     Dates: start: 20220602, end: 20220629
  4. ISATUXIMAB-IRFC [Suspect]
     Active Substance: ISATUXIMAB-IRFC
     Dosage: 795 MG, BIW
     Dates: start: 20220630, end: 20220727
  5. ISATUXIMAB-IRFC [Suspect]
     Active Substance: ISATUXIMAB-IRFC
     Dosage: 795 MG, BIW
     Dates: start: 20220728, end: 20220824
  6. ISATUXIMAB-IRFC [Suspect]
     Active Substance: ISATUXIMAB-IRFC
     Dosage: 795 MG, BIW
     Dates: start: 20220825, end: 20220920
  7. ISATUXIMAB-IRFC [Suspect]
     Active Substance: ISATUXIMAB-IRFC
     Dosage: 795 MG, BIW
     Dates: start: 20220922, end: 20221019
  8. POMALIDOMIDE [Suspect]
     Active Substance: POMALIDOMIDE
     Indication: Plasma cell myeloma refractory
     Dosage: 4 MG, 1-21/28 DAYS
     Dates: start: 20220324, end: 20220406
  9. POMALIDOMIDE [Suspect]
     Active Substance: POMALIDOMIDE
     Dosage: 3 MG, 1-21/28 DAYS
     Dates: start: 20220505, end: 20220601
  10. POMALIDOMIDE [Suspect]
     Active Substance: POMALIDOMIDE
     Dosage: 3 MG, 1-21/28 DAYS
     Dates: start: 20220602, end: 20220629
  11. POMALIDOMIDE [Suspect]
     Active Substance: POMALIDOMIDE
     Dosage: 3 MG, 1-21/28 DAYS
     Dates: start: 20220630, end: 20220727
  12. POMALIDOMIDE [Suspect]
     Active Substance: POMALIDOMIDE
     Dosage: 3 MG, 1-21/28 DAYS
     Dates: start: 20220728, end: 20220824
  13. POMALIDOMIDE [Suspect]
     Active Substance: POMALIDOMIDE
     Dosage: 3 MG, 1-21/28 DAYS
     Dates: start: 20220825, end: 20220920
  14. POMALIDOMIDE [Suspect]
     Active Substance: POMALIDOMIDE
     Dosage: 3 MG, 1-21/28 DAYS
     Dates: start: 20220922, end: 20221019
  15. DEXAMETHASONE [Suspect]
     Active Substance: DEXAMETHASONE
     Indication: Plasma cell myeloma refractory
     Dosage: 20 MG, QW
     Dates: start: 20220322, end: 20220406
  16. DEXAMETHASONE [Suspect]
     Active Substance: DEXAMETHASONE
     Dosage: 20 MG, BIW
     Dates: start: 20220505, end: 20220601
  17. DEXAMETHASONE [Suspect]
     Active Substance: DEXAMETHASONE
     Dosage: 20 MG, BIW
     Dates: start: 20220602, end: 20220629
  18. DEXAMETHASONE [Suspect]
     Active Substance: DEXAMETHASONE
     Dosage: 20 MG, BIW
     Dates: start: 20220630, end: 20220727
  19. DEXAMETHASONE [Suspect]
     Active Substance: DEXAMETHASONE
     Dosage: 20 MG, BIW
     Dates: start: 20220728, end: 20220824
  20. DEXAMETHASONE [Suspect]
     Active Substance: DEXAMETHASONE
     Dosage: 20 MG, BIW
     Dates: start: 20220825, end: 20220920
  21. DEXAMETHASONE [Suspect]
     Active Substance: DEXAMETHASONE
     Dosage: 20 MG, BIW
     Dates: start: 20220922, end: 20221019
  22. ELIQUIS [Concomitant]
     Active Substance: APIXABAN
     Indication: Hiatus hernia
  23. OMEPRAZOLE [Concomitant]
     Active Substance: OMEPRAZOLE
     Indication: Hiatus hernia
     Dosage: UNK
  24. ACETAMINOPHEN [Concomitant]
     Active Substance: ACETAMINOPHEN
     Indication: Premedication
     Dosage: UNK UNK, QCY
     Dates: start: 20240324
  25. BENADRYL [Concomitant]
     Active Substance: DIPHENHYDRAMINE HYDROCHLORIDE
     Indication: Premedication
     Dosage: UNK UNK, QCY
     Dates: start: 20220324
  26. PEPCID [Concomitant]
     Active Substance: FAMOTIDINE
     Indication: Premedication
     Dosage: UNK UNK, QCY
     Dates: start: 20220324
  27. EMEND (FOSAPREPITANT DIMEGLUMINE) [Concomitant]
     Active Substance: FOSAPREPITANT DIMEGLUMINE
     Indication: Premedication
     Dosage: UNK UNK, QCY
     Dates: start: 20220324
  28. VENTOLIN HFA [Concomitant]
     Active Substance: ALBUTEROL SULFATE
     Indication: Premedication
     Dosage: UNK UNK, QCY AS NEEDED
     Dates: start: 20220406, end: 20221031
  29. SINGULAIR [Concomitant]
     Active Substance: MONTELUKAST SODIUM
     Indication: Premedication
     Dosage: UNK UNK, QCY
     Dates: start: 20220406, end: 20220705

REACTIONS (1)
  - Oesophagitis ulcerative [Recovered/Resolved]

NARRATIVE: CASE EVENT DATE: 20221020
